FAERS Safety Report 9995522 (Version 1)
Quarter: 2014Q1

REPORT INFORMATION
  Report Type: Spontaneous
  Country: US (occurrence: None)
  Receive Date: 20140218
  Receipt Date: 20140218
  Transmission Date: 20141002
  Serious: Yes (Other)
  Sender: FDA-Public Use
  Company Number: 1000052459

PATIENT
  Age: 81 Year
  Sex: Female

DRUGS (1)
  1. VIIBRYD [Suspect]
     Indication: IRRITABLE BOWEL SYNDROME
     Dosage: 5 MG ( 5 MG, 1 IN 1 D), ORAL
     Route: 048
     Dates: start: 20131218

REACTIONS (3)
  - Nausea [None]
  - Sexual dysfunction [None]
  - Headache [None]
